FAERS Safety Report 14224280 (Version 2)
Quarter: 2017Q4

REPORT INFORMATION
  Report Type: Spontaneous
  Country: DE (occurrence: DE)
  Receive Date: 20171126
  Receipt Date: 20171225
  Transmission Date: 20180321
  Serious: Yes (Hospitalization, Other)
  Sender: FDA-Public Use
  Company Number: PHHY2017DE171420

PATIENT
  Age: 54 Year

DRUGS (2)
  1. ENVARSUS XR [Interacting]
     Active Substance: TACROLIMUS
     Indication: RENAL TRANSPLANT
     Dosage: UNK
     Route: 065
  2. CLARITHROMYCIN. [Suspect]
     Active Substance: CLARITHROMYCIN
     Indication: PNEUMONIA
     Dosage: UNK
     Route: 065

REACTIONS (3)
  - Labelled drug-drug interaction medication error [Recovered/Resolved]
  - Acute kidney injury [Recovered/Resolved]
  - Immunosuppressant drug level increased [Recovered/Resolved]
